FAERS Safety Report 8582598 (Version 2)
Quarter: 2012Q4

REPORT INFORMATION
  Report Type: 
  Country: JP (occurrence: JP)
  Receive Date: 20120529
  Receipt Date: 20121122
  Transmission Date: 20130627
  Serious: Yes (Hospitalization)
  Sender: FDA-Public Use
  Company Number: JP-JNJFOC-20120515480

PATIENT
  Age: 60 Year
  Sex: Female
  Weight: 58 kg

DRUGS (11)
  1. REMICADE [Suspect]
     Indication: RHEUMATOID ARTHRITIS
     Dosage: 21st infusion
     Route: 042
     Dates: start: 20120224
  2. REMICADE [Suspect]
     Indication: RHEUMATOID ARTHRITIS
     Dosage: 20 infusions administered
     Route: 042
     Dates: start: 20081006
  3. AZULFIDINE-EN [Concomitant]
     Indication: RHEUMATOID ARTHRITIS
     Route: 048
     Dates: start: 20071018, end: 20081006
  4. AZULFIDINE-EN [Concomitant]
     Indication: RHEUMATOID ARTHRITIS
     Route: 048
     Dates: start: 20081215
  5. AZULFIDINE-EN [Concomitant]
     Indication: RHEUMATOID ARTHRITIS
     Route: 048
     Dates: start: 20060330, end: 20060516
  6. AZULFIDINE-EN [Concomitant]
     Indication: RHEUMATOID ARTHRITIS
     Route: 048
     Dates: start: 20060628, end: 20070823
  7. METOLATE [Concomitant]
     Indication: RHEUMATOID ARTHRITIS
     Route: 048
     Dates: end: 20060809
  8. METOLATE [Concomitant]
     Indication: RHEUMATOID ARTHRITIS
     Dosage: Unknown dose details before 13-JAN-2006
     Route: 048
     Dates: end: 20120420
  9. METOLATE [Concomitant]
     Indication: RHEUMATOID ARTHRITIS
     Route: 048
     Dates: start: 20080311
  10. METOLATE [Concomitant]
     Indication: RHEUMATOID ARTHRITIS
     Route: 048
     Dates: start: 20060919, end: 20080121
  11. LOXONIN [Concomitant]
     Indication: RHEUMATOID ARTHRITIS
     Dosage: start date unknown before 13-JAN-2006.
     Route: 048

REACTIONS (11)
  - Breast cancer [Recovered/Resolved]
  - Atrioventricular block [Unknown]
  - Hepatitis B surface antibody positive [Unknown]
  - Antinuclear antibody increased [Not Recovered/Not Resolved]
  - Aspartate aminotransferase increased [Not Recovered/Not Resolved]
  - Platelet count decreased [Not Recovered/Not Resolved]
  - C-reactive protein increased [Recovered/Resolved]
  - Red blood cell sedimentation rate increased [Recovering/Resolving]
  - White blood cell count decreased [Not Recovered/Not Resolved]
  - Alanine aminotransferase increased [Not Recovered/Not Resolved]
  - Hepatitis B core antibody positive [Unknown]
